FAERS Safety Report 13329607 (Version 14)
Quarter: 2022Q2

REPORT INFORMATION
  Report Type: Spontaneous
  Country: BR (occurrence: BR)
  Receive Date: 20170313
  Receipt Date: 20220628
  Transmission Date: 20220721
  Serious: Yes (Hospitalization, Other)
  Sender: FDA-Public Use
  Company Number: BR-GLAXOSMITHKLINE-BR2015GSK057166

PATIENT

DRUGS (11)
  1. BENLYSTA [Suspect]
     Active Substance: BELIMUMAB
     Indication: Systemic lupus erythematosus
     Dosage: UNK
     Dates: start: 20141030
  2. BENLYSTA [Suspect]
     Active Substance: BELIMUMAB
     Dosage: UNK
     Dates: start: 20161031
  3. BENLYSTA [Suspect]
     Active Substance: BELIMUMAB
     Dosage: UNK
     Dates: start: 20161220
  4. BENLYSTA [Suspect]
     Active Substance: BELIMUMAB
     Dosage: 450 MG, UNK
     Dates: start: 20190926
  5. AZATHIOPRINE [Suspect]
     Active Substance: AZATHIOPRINE
     Indication: Arthralgia
     Dosage: 1 DF, TID
  6. DIPYRONE [Suspect]
     Active Substance: DIPYRONE
     Indication: Pyrexia
     Dosage: UNK
  7. ACYCLOVIR [Concomitant]
     Active Substance: ACYCLOVIR
     Indication: Product used for unknown indication
     Dosage: 200 MG, UNK
  8. PREDNISONE [Concomitant]
     Active Substance: PREDNISONE
     Indication: Product used for unknown indication
     Dosage: 30 MG, UNK
  9. LYRICA [Concomitant]
     Active Substance: PREGABALIN
     Indication: Product used for unknown indication
     Dosage: UNK
  10. PNEUMOCOCCAL VACCINE POLYVALENT [Concomitant]
     Active Substance: PNEUMOCOCCAL VACCINE POLYVALENT
     Indication: Prophylaxis
     Dosage: UNK
     Dates: start: 202202
  11. JOHNSON + JOHNSON JANSSEN COVID 19 VACCINE [Concomitant]
     Indication: Prophylaxis
     Dosage: UNK

REACTIONS (29)
  - COVID-19 [Recovered/Resolved]
  - Dyspnoea [Recovering/Resolving]
  - Cough [Recovering/Resolving]
  - Dysentery [Recovered/Resolved]
  - Thrombocytopenia [Unknown]
  - Influenza [Recovered/Resolved]
  - Arthralgia [Recovered/Resolved]
  - Herpes zoster [Recovered/Resolved]
  - Platelet count decreased [Not Recovered/Not Resolved]
  - Lymphocyte count decreased [Recovered/Resolved]
  - Sinusitis [Recovered/Resolved]
  - Dysphonia [Recovered/Resolved]
  - Decreased immune responsiveness [Unknown]
  - Nasopharyngitis [Unknown]
  - Weight increased [Unknown]
  - Sleep disorder due to a general medical condition [Unknown]
  - Back pain [Unknown]
  - Chest pain [Unknown]
  - Painful respiration [Unknown]
  - Pyrexia [Unknown]
  - Tachypnoea [Unknown]
  - Fatigue [Unknown]
  - Aphonia [Unknown]
  - Product dose omission issue [Unknown]
  - Off label use [Recovered/Resolved]
  - Circumstance or information capable of leading to medication error [Recovered/Resolved]
  - Incorrect dose administered [Unknown]
  - Inappropriate schedule of product administration [Unknown]
  - Exposure during pregnancy [Recovered/Resolved]

NARRATIVE: CASE EVENT DATE: 20200330
